FAERS Safety Report 6967954-0 (Version None)
Quarter: 2010Q3

REPORT INFORMATION
  Report Type: 
  Country: None (occurrence: None)
  Receive Date: 20100907
  Receipt Date: 20100825
  Transmission Date: 20110219
  Serious: Yes (Hospitalization)
  Sender: FDA-Public Use
  Company Number: A0718189A

PATIENT
  Age: 66 Year
  Sex: Female
  Weight: 100 kg

DRUGS (8)
  1. AVANDIA [Suspect]
     Dosage: 8MG PER DAY
     Route: 048
     Dates: start: 20050121, end: 20070630
  2. LISINOPRIL [Suspect]
  3. TRIAMTERENE AND HYDROCHLOROTHIAZIDE [Concomitant]
  4. GLIMEPIRIDE [Concomitant]
  5. BYETTA [Concomitant]
  6. LANTUS [Concomitant]
  7. GLUCOTROL [Concomitant]
  8. HYDROCODONE [Concomitant]

REACTIONS (4)
  - ANAEMIA [None]
  - CARDIAC FAILURE CONGESTIVE [None]
  - FLUID OVERLOAD [None]
  - HEART INJURY [None]
